FAERS Safety Report 11953588 (Version 1)
Quarter: 2016Q1

REPORT INFORMATION
  Report Type: Report from Study
  Country: US (occurrence: US)
  Receive Date: 20160126
  Receipt Date: 20160126
  Transmission Date: 20160526
  Serious: Yes (Death)
  Sender: FDA-Public Use
  Company Number: US-BAYER-2015-498559

PATIENT
  Age: 75 Year
  Sex: Male
  Weight: 99.77 kg

DRUGS (1)
  1. ADEMPAS [Suspect]
     Active Substance: RIOCIGUAT
     Indication: PULMONARY HYPERTENSION
     Dosage: 0.5 MG, TID
     Route: 048
     Dates: start: 20151209

REACTIONS (11)
  - Peripheral swelling [None]
  - Vomiting [None]
  - Diarrhoea [Unknown]
  - Gastrointestinal pain [None]
  - Insomnia [Unknown]
  - Vomiting [Unknown]
  - Death [Fatal]
  - Abdominal discomfort [None]
  - Joint swelling [None]
  - Diarrhoea [None]
  - Abdominal distension [None]

NARRATIVE: CASE EVENT DATE: 20160110
